FAERS Safety Report 9138302 (Version 2)
Quarter: 2015Q4

REPORT INFORMATION
  Report Type: Spontaneous
  Country: CA (occurrence: CA)
  Receive Date: 20130305
  Receipt Date: 20151006
  Transmission Date: 20160305
  Serious: Yes (Other)
  Sender: FDA-Public Use
  Company Number: CA-RANBAXY-2013US-65561

PATIENT
  Age: 10 Year
  Sex: Female
  Weight: 11.4 kg

DRUGS (5)
  1. CARNITINE [Concomitant]
     Active Substance: CARNITINE
     Indication: PRODUCT USED FOR UNKNOWN INDICATION
     Dosage: 50 MG, BID
     Route: 065
  2. CALCIUM CARBONATE. [Concomitant]
     Active Substance: CALCIUM CARBONATE
     Indication: PRODUCT USED FOR UNKNOWN INDICATION
     Dosage: 125 MG, DAILY
     Route: 065
  3. TOPIRAMATE. [Suspect]
     Active Substance: TOPIRAMATE
     Indication: SEIZURE
     Dosage: 25 MG A.M, 12.5 MG PM AND 25 MG NOCTE
     Route: 065
  4. LANSOPRAZOLE. [Concomitant]
     Active Substance: LANSOPRAZOLE
     Indication: PRODUCT USED FOR UNKNOWN INDICATION
     Dosage: 15 MG, BID
     Route: 065
  5. VALPROIC ACID. [Suspect]
     Active Substance: VALPROIC ACID
     Indication: SEIZURE
     Dosage: 125MG AM, 62.5MG PM, AND 125MG NOCTE
     Route: 065

REACTIONS (6)
  - Drug interaction [Unknown]
  - Hypophosphataemic rickets [Recovered/Resolved]
  - Femur fracture [Unknown]
  - Fanconi syndrome [Recovered/Resolved]
  - Nephrocalcinosis [Recovering/Resolving]
  - Hypophosphataemia [Recovered/Resolved]
